FAERS Safety Report 9215957 (Version 1)
Quarter: 2013Q2

REPORT INFORMATION
  Report Type: Spontaneous
  Country: US (occurrence: None)
  Receive Date: 20130403
  Receipt Date: 20130403
  Transmission Date: 20140414
  Serious: Yes (Other)
  Sender: FDA-Public Use
  Company Number: USW201203-000024

PATIENT
  Sex: Female
  Weight: 86.18 kg

DRUGS (5)
  1. APOKYN (APOMORPHINE HYDROCHLORIDE) (APOMORPHINE HYDROCHLORIDE) [Concomitant]
     Dates: start: 201211
  2. STALEVO (CARBIDOPA, LEVODOPA, ENTACAPONE) (CARBIDOPA, LEVODOPA, ENTACAPONE) [Concomitant]
  3. REQUIP (ROPINIROLE) (ROPINIROLE) [Concomitant]
  4. AMANTADINE (AMANTADINE) (AMANTADINE) [Concomitant]
  5. ESTERASE (ESTERASE) (ESTERASE) [Concomitant]

REACTIONS (2)
  - Joint swelling [None]
  - Arthralgia [None]
